FAERS Safety Report 12210201 (Version 1)
Quarter: 2016Q1

REPORT INFORMATION
  Report Type: Spontaneous
  Country: US (occurrence: US)
  Receive Date: 20160325
  Receipt Date: 20160325
  Transmission Date: 20160526
  Serious: No
  Sender: FDA-Public Use
  Company Number: US-PFIZER INC-2016157867

PATIENT
  Age: 57 Year
  Sex: Female
  Weight: 108.86 kg

DRUGS (3)
  1. LYRICA [Suspect]
     Active Substance: PREGABALIN
     Dosage: 75 MG, 2X/DAY
  2. LYRICA [Suspect]
     Active Substance: PREGABALIN
     Indication: NEUROPATHY PERIPHERAL
     Dosage: 75 MG, 1X/DAY
  3. LYRICA [Suspect]
     Active Substance: PREGABALIN
     Dosage: 100 MG, 3X/DAY

REACTIONS (8)
  - Pain in extremity [Unknown]
  - Weight increased [Unknown]
  - Glucose tolerance impaired [Unknown]
  - Vitamin B12 deficiency [Unknown]
  - Asthenia [Unknown]
  - Drug ineffective [Unknown]
  - Feeling abnormal [Unknown]
  - Somnolence [Unknown]
